FAERS Safety Report 4677195-8 (Version None)
Quarter: 2005Q2

REPORT INFORMATION
  Report Type: 
  Country: None (occurrence: None)
  Receive Date: 20050531
  Receipt Date: 20050518
  Transmission Date: 20051028
  Serious: Yes (Hospitalization)
  Sender: FDA-Public Use
  Company Number: NSADSS2002030335

PATIENT
  Sex: Male

DRUGS (5)
  1. REMICADE [Suspect]
     Route: 041
  2. REMICADE [Suspect]
     Route: 041
  3. METHOTREXATE [Concomitant]
     Route: 049
  4. IMUREK [Concomitant]
     Route: 049
  5. DECORTIN [Concomitant]
     Route: 049

REACTIONS (12)
  - ARTHRITIS [None]
  - BACTERIAL INFECTION [None]
  - CONDITION AGGRAVATED [None]
  - DIARRHOEA [None]
  - ENTEROVESICAL FISTULA [None]
  - ERYTHEMA NODOSUM [None]
  - GENERAL PHYSICAL HEALTH DETERIORATION [None]
  - INFLAMMATION [None]
  - LYMPHADENOPATHY [None]
  - PYREXIA [None]
  - WEIGHT DECREASED [None]
  - WHIPPLE'S DISEASE [None]
